FAERS Safety Report 7746652-X (Version None)
Quarter: 2011Q3

REPORT INFORMATION
  Report Type: 
  Country: None (occurrence: None)
  Receive Date: 20110913
  Receipt Date: 20110907
  Transmission Date: 20111222
  Serious: Yes (Hospitalization, Other)
  Sender: FDA-Public Use
  Company Number: US-ABBOTT-11P-163-0729601-00

PATIENT
  Sex: Male
  Weight: 65.376 kg

DRUGS (4)
  1. HUMIRA [Suspect]
     Dates: start: 20110601
  2. PENTASA [Concomitant]
     Indication: PRODUCT USED FOR UNKNOWN INDICATION
  3. HUMIRA [Suspect]
     Indication: CROHN'S DISEASE
     Dosage: LOADING DOSE
     Dates: start: 20110328, end: 20110407
  4. ENTOCORT EC [Concomitant]
     Indication: PRODUCT USED FOR UNKNOWN INDICATION

REACTIONS (5)
  - HERNIA [None]
  - PERITONEAL NECROSIS [None]
  - ABDOMINAL MASS [None]
  - SMALL INTESTINAL PERFORATION [None]
  - INJECTION SITE PAIN [None]
